FAERS Safety Report 4730714-5 (Version None)
Quarter: 2005Q3

REPORT INFORMATION
  Report Type: 
  Country: None (occurrence: None)
  Receive Date: 20050801
  Receipt Date: 20050720
  Transmission Date: 20060218
  Serious: Yes (Hospitalization)
  Sender: FDA-Public Use
  Company Number: FR-BRISTOL-MYERS SQUIBB COMPANY-13047337

PATIENT
  Age: 13 Year
  Sex: Male

DRUGS (4)
  1. NIFLURIL CAPS 250 MG [Suspect]
     Route: 048
     Dates: start: 20050609, end: 20050613
  2. DOLIPRANE [Suspect]
     Indication: WISDOM TEETH REMOVAL
     Route: 048
     Dates: start: 20050609, end: 20050615
  3. AMOXICILLIN [Suspect]
     Indication: WISDOM TEETH REMOVAL
     Route: 048
     Dates: start: 20050609, end: 20050615
  4. ELUDRIL [Suspect]
     Indication: WISDOM TEETH REMOVAL
     Route: 048
     Dates: start: 20050609, end: 20050615

REACTIONS (1)
  - RENAL FAILURE ACUTE [None]
